FAERS Safety Report 11453279 (Version 1)
Quarter: 2015Q3

REPORT INFORMATION
  Report Type: Spontaneous
  Country: US (occurrence: US)
  Receive Date: 20150903
  Receipt Date: 20150903
  Transmission Date: 20151125
  Serious: No
  Sender: FDA-Public Use
  Company Number: US-PFIZER INC-2015290435

PATIENT
  Age: 63 Year
  Sex: Female
  Weight: 79 kg

DRUGS (1)
  1. CELEBREX [Suspect]
     Active Substance: CELECOXIB
     Dosage: 200 MG CAPSULE, ONE IN THE MORNING AND ONE IN THE EVENING
     Route: 048

REACTIONS (3)
  - Drug dose omission [Recovered/Resolved]
  - Pain in extremity [Unknown]
  - Foot deformity [Not Recovered/Not Resolved]

NARRATIVE: CASE EVENT DATE: 2015
